FAERS Safety Report 4279126-1 (Version None)
Quarter: 2004Q1

REPORT INFORMATION
  Report Type: 
  Country: None (occurrence: None)
  Receive Date: 20040122
  Receipt Date: 20040109
  Transmission Date: 20041129
  Serious: Yes (Death)
  Sender: FDA-Public Use
  Company Number: 201238

PATIENT
  Age: 46 Year
  Sex: Male
  Weight: 60.9 kg

DRUGS (7)
  1. RITUXAN [Suspect]
     Indication: NON-HODGKIN'S LYMPHOMA
     Dosage: 375 MG/M2, Q3W, INTRAVENOUS
     Route: 042
     Dates: start: 20021217, end: 20030408
  2. ETOPOSIDE [Suspect]
     Indication: HIV INFECTION CDC GROUP IV SUBGROUP D
     Dosage: 50 MG/M2, INTRAVENOUS
     Route: 042
     Dates: start: 20021217, end: 20030408
  3. DOXORUBICIN HCL [Suspect]
     Indication: HIV INFECTION CDC GROUP IV SUBGROUP D
     Dosage: 10 MG/M2, INTRAVENOUS
     Route: 042
     Dates: start: 20021217, end: 20030408
  4. VINCRISTINE [Suspect]
     Indication: HIV INFECTION CDC GROUP IV SUBGROUP D
     Dosage: 0.4 MG/M2, INTRAVENOUS
     Route: 042
     Dates: start: 20021217, end: 20030408
  5. CYCLOPHOSPHAMIDE [Suspect]
     Indication: HIV INFECTION CDC GROUP IV SUBGROUP D
     Dosage: 375 MG/M2, Q3W, INTRAVENOUS
     Route: 042
     Dates: start: 20021217, end: 20030408
  6. PREDNISONE [Suspect]
     Indication: HIV INFECTION CDC GROUP IV SUBGROUP D
     Dosage: 60 MG/M2, QDX5D/21DC, ORAL
     Route: 048
     Dates: start: 20021217, end: 20030408
  7. GCSF (FILGRASTIM) [Concomitant]

REACTIONS (14)
  - ACIDOSIS [None]
  - DECREASED ACTIVITY [None]
  - DIARRHOEA [None]
  - DRUG TOXICITY [None]
  - ELECTROLYTE IMBALANCE [None]
  - FEBRILE NEUTROPENIA [None]
  - FLUID INTAKE REDUCED [None]
  - HYPOTENSION [None]
  - HYPOVOLAEMIA [None]
  - LETHARGY [None]
  - MENTAL STATUS CHANGES [None]
  - NAUSEA [None]
  - RENAL FAILURE [None]
  - TACHYCARDIA [None]
